FAERS Safety Report 8760492 (Version 1)
Quarter: 2012Q4

REPORT INFORMATION
  Report Type: 
  Country: MX (occurrence: MX)
  Receive Date: 20120830
  Receipt Date: 20120830
  Transmission Date: 20130627
  Serious: Yes (Other)
  Sender: FDA-Public Use
  Company Number: PHHY2012MX074669

PATIENT
  Sex: Female

DRUGS (5)
  1. CO-DIOVAN [Suspect]
     Indication: HYPERTENSION
     Dosage: 0.5 DF (Valsartan 80mg and 12.5mg hydrochlorothiazide) daily
     Route: 048
  2. PARACETAMOL [Concomitant]
  3. RANITIDINE [Concomitant]
  4. SALBUTAMOL [Concomitant]
  5. BROMIDES [Concomitant]

REACTIONS (1)
  - Chronic obstructive pulmonary disease [Unknown]
